FAERS Safety Report 21535349 (Version 1)
Quarter: 2022Q4

REPORT INFORMATION
  Report Type: Spontaneous
  Country: US (occurrence: US)
  Receive Date: 20221101
  Receipt Date: 20221101
  Transmission Date: 20230112
  Serious: No
  Sender: FDA-Public Use
  Company Number: US-MIGRATION_PFIZER-2022BHV002101

PATIENT
  Sex: Female

DRUGS (1)
  1. NURTEC ODT [Suspect]
     Active Substance: RIMEGEPANT SULFATE
     Indication: Prophylaxis
     Route: 065

REACTIONS (6)
  - Tinnitus [Unknown]
  - Feeling abnormal [Unknown]
  - Fatigue [Unknown]
  - Pyrexia [Unknown]
  - Dyspnoea [Unknown]
  - Nausea [Unknown]
